FAERS Safety Report 8847522 (Version 2)
Quarter: 2012Q4

REPORT INFORMATION
  Report Type: 
  Country: US (occurrence: US)
  Receive Date: 20121018
  Receipt Date: 20121126
  Transmission Date: 20130627
  Serious: No
  Sender: FDA-Public Use
  Company Number: US-ELI_LILLY_AND_COMPANY-US201210004596

PATIENT
  Sex: Male
  Weight: 55.9 kg

DRUGS (1)
  1. HUMATROPE [Suspect]
     Dosage: 2.4 mg, qd
     Route: 058

REACTIONS (1)
  - Tooth impacted [Recovered/Resolved]
